FAERS Safety Report 6335498-5 (Version None)
Quarter: 2009Q3

REPORT INFORMATION
  Report Type: 
  Country: None (occurrence: None)
  Receive Date: 20090831
  Receipt Date: 20090828
  Transmission Date: 20100115
  Serious: Yes (Hospitalization, Other)
  Sender: FDA-Public Use
  Company Number: US-AMGEN-US362258

PATIENT
  Sex: Male
  Weight: 60 kg

DRUGS (11)
  1. NPLATE [Suspect]
     Indication: IDIOPATHIC THROMBOCYTOPENIC PURPURA
     Dates: start: 20090826
  2. IMMUNOGLOBULINS [Concomitant]
     Route: 042
  3. INVANZ [Concomitant]
  4. FOLIC ACID [Concomitant]
  5. MULTI-VITAMINS [Concomitant]
  6. NITRGLYCERIN TRANSDERMAL SYSTEM [Concomitant]
     Route: 061
  7. SOLU-MEDROL [Concomitant]
  8. CARDIZEM [Concomitant]
  9. ASCORBIC ACID [Concomitant]
  10. CARAFATE [Concomitant]
  11. BENADRYL [Concomitant]

REACTIONS (1)
  - PLATELET COUNT DECREASED [None]
